FAERS Safety Report 6115834-5 (Version None)
Quarter: 2009Q1

REPORT INFORMATION
  Report Type: 
  Country: None (occurrence: None)
  Receive Date: 20090311
  Receipt Date: 20090303
  Transmission Date: 20090719
  Serious: Yes (Other)
  Sender: FDA-Public Use
  Company Number: 207454

PATIENT
  Age: 51 Year
  Sex: Male

DRUGS (9)
  1. EPINEPHRINE              INJ USP 0.1 MG/ML (EPINEPHRINE) [Suspect]
     Indication: DYSPNOEA
     Dosage: .1 MG, INTRAVENOUS
     Route: 042
  2. EPINEPHRINE              INJ USP 0.1 MG/ML (EPINEPHRINE) [Suspect]
     Indication: HYPOTENSION
     Dosage: .1 MG, INTRAVENOUS
     Route: 042
  3. EPINEPHRINE              INJ USP 0.1 MG/ML (EPINEPHRINE) [Suspect]
     Indication: LARYNGEAL OEDEMA
     Dosage: .1 MG, INTRAVENOUS
     Route: 042
  4. WATERSOLU, NEPHROT., LOW OSM. X-RAY CONSTRASTM.) [Concomitant]
  5. DIPHENHYDRAMINE HCL [Concomitant]
  6. OXYGEN [Concomitant]
  7. ISOTONIC SOLUTIONS [Concomitant]
  8. METHYLPREDNISOLONE 4MG TAB [Concomitant]
  9. ONDANSETRON [Concomitant]

REACTIONS (3)
  - ARTERIOSPASM CORONARY [None]
  - BLOOD PRESSURE DECREASED [None]
  - MYOCARDIAL INFARCTION [None]
